FAERS Safety Report 12167179 (Version 1)
Quarter: 2016Q1

REPORT INFORMATION
  Report Type: Spontaneous
  Country: US (occurrence: None)
  Receive Date: 20160309
  Receipt Date: 20160309
  Transmission Date: 20160526
  Serious: Yes (Hospitalization, Disabling)
  Sender: FDA-Public Use
  Company Number: None

PATIENT
  Age: 46 Year
  Sex: Female
  Weight: 170 kg

DRUGS (3)
  1. BABY ASPIRIN 81 MG [Concomitant]
  2. AZOR 5 MG/40 MG [Concomitant]
  3. LEVAQUIN [Suspect]
     Active Substance: LEVOFLOXACIN
     Indication: PNEUMONIA
     Dosage: 7 PILLS ONCE DAILY TAKEN BY MOUTH
     Route: 048
     Dates: start: 20150130, end: 20150205

REACTIONS (8)
  - Lethargy [None]
  - Renal failure [None]
  - Decreased appetite [None]
  - Hypoaesthesia [None]
  - Abdominal pain [None]
  - Flatulence [None]
  - Vomiting [None]
  - Nausea [None]

NARRATIVE: CASE EVENT DATE: 20150207
